FAERS Safety Report 14432829 (Version 1)
Quarter: 2018Q1

REPORT INFORMATION
  Report Type: Spontaneous
  Country: US (occurrence: US)
  Receive Date: 20180124
  Receipt Date: 20180124
  Transmission Date: 20180509
  Serious: Yes (Other)
  Sender: FDA-Public Use
  Company Number: US-FRESENIUS KABI-FK201800814

PATIENT
  Age: 56 Year
  Sex: Male

DRUGS (2)
  1. FLUOROURACIL (MANUFACTURER UNKNOWN) [Suspect]
     Active Substance: FLUOROURACIL
     Indication: ANAL CANCER
     Route: 065
  2. MITOMYCIN. [Suspect]
     Active Substance: MITOMYCIN
     Indication: ANAL CANCER
     Route: 065

REACTIONS (1)
  - Hepatitis C [Unknown]
